FAERS Safety Report 8908561 (Version 1)
Quarter: 2012Q4

REPORT INFORMATION
  Report Type: 
  Country: US (occurrence: US)
  Receive Date: 20121114
  Receipt Date: 20121114
  Transmission Date: 20130627
  Serious: Yes (Other)
  Sender: FDA-Public Use
  Company Number: US-ELI_LILLY_AND_COMPANY-US201211001606

PATIENT
  Age: 69 Year
  Sex: Female

DRUGS (5)
  1. CYMBALTA [Suspect]
     Indication: SCIATICA
     Dosage: 30 mg, tid
     Dates: start: 201208
  2. PANTOPRAZOLE [Concomitant]
  3. VISTARIL [Concomitant]
  4. TOPAMAX [Concomitant]
  5. WELLBUTRIN [Concomitant]

REACTIONS (6)
  - Mass [Unknown]
  - Balance disorder [Unknown]
  - Oral mucosal blistering [Unknown]
  - Oral pain [Unknown]
  - Speech disorder [Unknown]
  - Dysphonia [Unknown]
